FAERS Safety Report 9295712 (Version 1)
Quarter: 2013Q1

REPORT INFORMATION
  Report Type: Spontaneous
  Country: US (occurrence: None)
  Receive Date: 20130103
  Receipt Date: 20130103
  Transmission Date: 20140127
  Serious: Yes (Other)
  Sender: FDA-Public Use
  Company Number: DSA_59033_2012

PATIENT
  Sex: Female
  Weight: 51.26 kg

DRUGS (3)
  1. XENAZINE [Suspect]
     Indication: HUNTINGTON^S DISEASE
     Route: 048
     Dates: start: 20120109, end: 20120209
  2. PROLIXIN /00000602/ (UNKNOWN) [Concomitant]
  3. DEPO-PROVERA (UNKNOWN) [Concomitant]

REACTIONS (2)
  - Depression [None]
  - Suicidal ideation [None]
